FAERS Safety Report 14255878 (Version 1)
Quarter: 2017Q4

REPORT INFORMATION
  Report Type: Spontaneous
  Country: GB (occurrence: GB)
  Receive Date: 20171206
  Receipt Date: 20171206
  Transmission Date: 20180321
  Serious: Yes (Other)
  Sender: FDA-Public Use
  Company Number: GB-JNJFOC-20171205774

PATIENT
  Age: 39 Year
  Sex: Female
  Weight: 48 kg

DRUGS (1)
  1. XARELTO [Suspect]
     Active Substance: RIVAROXABAN
     Indication: DEEP VEIN THROMBOSIS
     Route: 048
     Dates: start: 201704, end: 20170929

REACTIONS (8)
  - Impulsive behaviour [Unknown]
  - Anxiety [Recovering/Resolving]
  - Paranoia [Recovering/Resolving]
  - Irritability [Recovering/Resolving]
  - Decreased appetite [Recovering/Resolving]
  - Memory impairment [Recovering/Resolving]
  - Abnormal loss of weight [Recovering/Resolving]
  - Thinking abnormal [Recovering/Resolving]

NARRATIVE: CASE EVENT DATE: 201709
